FAERS Safety Report 7148416-7 (Version None)
Quarter: 2010Q4

REPORT INFORMATION
  Report Type: 
  Country: None (occurrence: None)
  Receive Date: 20101124
  Receipt Date: 20101109
  Transmission Date: 20110411
  Serious: Yes (Death, Other)
  Sender: FDA-Public Use
  Company Number: WAES 1011USA01632

PATIENT
  Age: 76 Year
  Sex: Male

DRUGS (5)
  1. PEPCID [Suspect]
     Indication: PROPHYLAXIS
     Dosage: 20 MG/BID IV
     Route: 042
  2. ZYVOX [Suspect]
     Indication: PNEUMONIA
     Dosage: 600 MG/BID IV
     Route: 042
     Dates: start: 20080514, end: 20080529
  3. MEROPENEM [Suspect]
     Indication: PNEUMONIA
     Dosage: 0.5 GM/TID
     Dates: start: 20090514, end: 20090523
  4. SOLU-CORTEF [Concomitant]
  5. LANDIOLOL HYDROCHLORIDE [Concomitant]

REACTIONS (4)
  - DRUG INEFFECTIVE [None]
  - HYPERNATRAEMIA [None]
  - PNEUMONIA [None]
  - THROMBOCYTOPENIA [None]
